FAERS Safety Report 23996984 (Version 2)
Quarter: 2025Q3

REPORT INFORMATION
  Report Type: Report from Study
  Country: US (occurrence: US)
  Receive Date: 20240621
  Receipt Date: 20250819
  Transmission Date: 20251020
  Serious: Yes (Other)
  Sender: ABBVIE
  Company Number: US-ABBVIE-5806361

PATIENT
  Sex: Female

DRUGS (2)
  1. RINVOQ [Suspect]
     Active Substance: UPADACITINIB
     Indication: Rheumatoid arthritis
     Dosage: FORM STRENGTH 15 MILLIGRAM?LAST ADMIN DATE 2024, AS MENTIONED STOPPED RINVOQ ESTIMATED ONE MONTH ...
     Route: 048
     Dates: start: 202311, end: 2024
  2. RINVOQ [Suspect]
     Active Substance: UPADACITINIB
     Indication: Rheumatoid arthritis
     Route: 048
     Dates: start: 2024

REACTIONS (2)
  - Pyoderma gangrenosum [Not Recovered/Not Resolved]
  - Drug ineffective [Not Recovered/Not Resolved]
